FAERS Safety Report 14030965 (Version 2)
Quarter: 2017Q4

REPORT INFORMATION
  Report Type: Spontaneous
  Country: CH (occurrence: CH)
  Receive Date: 20171002
  Receipt Date: 20171012
  Transmission Date: 20180321
  Serious: Yes (Other)
  Sender: FDA-Public Use
  Company Number: CH-CELGENEUS-CHE-20170904800

PATIENT
  Sex: Male

DRUGS (4)
  1. AZACITIDINE. [Suspect]
     Active Substance: AZACITIDINE
     Indication: CHRONIC MYELOMONOCYTIC LEUKAEMIA
     Route: 065
     Dates: start: 20170109
  2. LITALIR [Concomitant]
     Active Substance: HYDROXYUREA
     Route: 065
     Dates: start: 20170612
  3. AZACITIDINE. [Suspect]
     Active Substance: AZACITIDINE
     Route: 065
     Dates: start: 20170612
  4. LITALIR [Concomitant]
     Active Substance: HYDROXYUREA
     Indication: PRODUCT USED FOR UNKNOWN INDICATION
     Dosage: 1 GRAM
     Route: 065
     Dates: start: 20170206

REACTIONS (7)
  - Chronic myelomonocytic leukaemia [Unknown]
  - Full blood count decreased [Unknown]
  - Leukocytosis [Unknown]
  - Platelet count decreased [Unknown]
  - Drug ineffective [Unknown]
  - Splenic infarction [Unknown]
  - Splenomegaly [Unknown]
